FAERS Safety Report 13800889 (Version 1)
Quarter: 2017Q3

REPORT INFORMATION
  Report Type: Spontaneous
  Country: CA (occurrence: CA)
  Receive Date: 20170727
  Receipt Date: 20170727
  Transmission Date: 20171127
  Serious: Yes (Hospitalization)
  Sender: FDA-Public Use
  Company Number: CA-ALKEM LABORATORIES LIMITED-CA-ALKEM-2017-00511

PATIENT
  Age: 36 Year
  Sex: Female

DRUGS (4)
  1. LIDOCAINE. [Suspect]
     Active Substance: LIDOCAINE
     Indication: SUTURE RELATED COMPLICATION
     Dosage: 20 ML, UNK
     Route: 065
  2. EPINEPHRINE. [Suspect]
     Active Substance: EPINEPHRINE
     Indication: CEREBROSPINAL FLUID LEAKAGE
  3. LIDOCAINE. [Suspect]
     Active Substance: LIDOCAINE
     Indication: CEREBROSPINAL FLUID LEAKAGE
  4. EPINEPHRINE. [Suspect]
     Active Substance: EPINEPHRINE
     Indication: SUTURE RELATED COMPLICATION
     Dosage: 5 ?G/ML
     Route: 065

REACTIONS (9)
  - Dysarthria [Recovered/Resolved]
  - Malaise [Recovered/Resolved]
  - Upper airway obstruction [Recovered/Resolved]
  - Quadriparesis [Recovered/Resolved]
  - Cyanosis [Recovered/Resolved]
  - Eyelid ptosis [Recovered/Resolved]
  - Ophthalmoplegia [Recovered/Resolved]
  - Dyspnoea [Recovered/Resolved]
  - Aphasia [Recovered/Resolved]
